FAERS Safety Report 14950812 (Version 1)
Quarter: 2018Q2

REPORT INFORMATION
  Report Type: Spontaneous
  Country: CH (occurrence: CH)
  Receive Date: 20180530
  Receipt Date: 20180530
  Transmission Date: 20180711
  Serious: Yes (Hospitalization, Other)
  Sender: FDA-Public Use
  Company Number: CH-TEVA-2018-CH-898410

PATIENT
  Age: 64 Year
  Sex: Female

DRUGS (10)
  1. VENLAFAXIN SANDOZ ER [Suspect]
     Active Substance: VENLAFAXINE HYDROCHLORIDE
     Dosage: 150 MILLIGRAM DAILY;
     Route: 048
     Dates: end: 20180502
  2. PERINDOPRIL [Suspect]
     Active Substance: PERINDOPRIL
     Route: 048
     Dates: end: 20180426
  3. PRAVASTATIN MEPHA [Suspect]
     Active Substance: PRAVASTATIN
     Dosage: 40 MILLIGRAM DAILY;
     Route: 048
     Dates: end: 20180430
  4. TRITTICO 50 MG TABLETS [Suspect]
     Active Substance: TRAZODONE HYDROCHLORIDE
     Dosage: 50 MILLIGRAM DAILY;
     Route: 048
     Dates: end: 20180501
  5. CEFTRIAXON [Concomitant]
     Active Substance: CEFTRIAXONE
     Dates: end: 20180430
  6. GLIMEPIRID SANDOZ [Suspect]
     Active Substance: GLIMEPIRIDE
     Dosage: .5 MILLIGRAM DAILY;
     Route: 048
     Dates: end: 20180430
  7. ACIDUM FOLICUM [Concomitant]
     Active Substance: FOLIC ACID
     Route: 048
  8. ZYLORIC 100 TABLETS [Suspect]
     Active Substance: ALLOPURINOL
     Dosage: 50 MILLIGRAM DAILY;
     Route: 048
     Dates: end: 20180501
  9. CHOLECALCIFEROL [Concomitant]
     Active Substance: CHOLECALCIFEROL
     Route: 048
  10. KONAKION [Concomitant]
     Active Substance: PHYTONADIONE
     Dates: start: 20180501

REACTIONS (3)
  - Drug-induced liver injury [Recovering/Resolving]
  - Basal ganglia haemorrhage [None]
  - Cerebral venous thrombosis [None]

NARRATIVE: CASE EVENT DATE: 20180430
